FAERS Safety Report 15238327 (Version 1)
Quarter: 2018Q3

REPORT INFORMATION
  Report Type: Spontaneous
  Country: US (occurrence: US)
  Receive Date: 20180710
  Receipt Date: 20180710
  Transmission Date: 20181010
  Serious: Yes (Other)
  Sender: FDA-Public Use
  Company Number: None

PATIENT
  Age: 54 Year
  Sex: Male

DRUGS (1)
  1. SUBOXONE [Suspect]
     Active Substance: BUPRENORPHINE HYDROCHLORIDE\NALOXONE HYDROCHLORIDE
     Indication: DRUG DEPENDENCE
     Route: 060
     Dates: start: 201803

REACTIONS (9)
  - Pain [None]
  - Swollen tongue [None]
  - Gingival pain [None]
  - Oral pain [None]
  - Glossitis [None]
  - Swelling [None]
  - Glossodynia [None]
  - Gingival swelling [None]
  - Burning sensation [None]

NARRATIVE: CASE EVENT DATE: 20180627
